FAERS Safety Report 7543691-9 (Version None)
Quarter: 2011Q2

REPORT INFORMATION
  Report Type: 
  Country: None (occurrence: None)
  Receive Date: 20110613
  Receipt Date: 20030204
  Transmission Date: 20111010
  Serious: Yes (Other)
  Sender: FDA-Public Use
  Company Number: PHFR2002GB03860

PATIENT
  Sex: Male
  Weight: 105 kg

DRUGS (2)
  1. ATENOLOL [Concomitant]
     Indication: HYPERTENSION
     Dosage: 50 MG, TID
     Route: 048
     Dates: start: 20021220
  2. CLOZARIL [Suspect]
     Indication: SCHIZOPHRENIA
     Dosage: 400 MG/DAY
     Route: 048
     Dates: start: 19931129

REACTIONS (1)
  - BASAL CELL CARCINOMA [None]
